FAERS Safety Report 7482043-7 (Version None)
Quarter: 2011Q2

REPORT INFORMATION
  Report Type: 
  Country: None (occurrence: None)
  Receive Date: 20110516
  Receipt Date: 20110506
  Transmission Date: 20111010
  Serious: Yes (Other)
  Sender: FDA-Public Use
  Company Number: US-ASTRAZENECA-2011SE11905

PATIENT
  Age: 41 Year
  Sex: Female
  Weight: 88.9 kg

DRUGS (7)
  1. RISPERDAL [Concomitant]
  2. LANTUS SOLAN SOL PEN [Concomitant]
     Indication: TYPE 2 DIABETES MELLITUS
     Route: 058
     Dates: start: 20101230
  3. ABILIFY [Concomitant]
  4. GLIPIZIDE [Concomitant]
     Indication: TYPE 2 DIABETES MELLITUS
     Route: 048
     Dates: start: 20100928
  5. METFORMIN HCL [Concomitant]
     Indication: TYPE 2 DIABETES MELLITUS
     Route: 048
     Dates: start: 20100928
  6. SEROQUEL XR [Suspect]
     Indication: BIPOLAR DISORDER
     Route: 048
     Dates: start: 20110301
  7. GEODON [Concomitant]

REACTIONS (4)
  - BIPOLAR I DISORDER [None]
  - ILL-DEFINED DISORDER [None]
  - SUICIDAL IDEATION [None]
  - DRUG DOSE OMISSION [None]
